FAERS Safety Report 11461204 (Version 1)
Quarter: 2015Q3

REPORT INFORMATION
  Report Type: Spontaneous
  Country: US (occurrence: US)
  Receive Date: 20150831
  Receipt Date: 20150831
  Transmission Date: 20151125
  Serious: No
  Sender: FDA-Public Use
  Company Number: US-ELI_LILLY_AND_COMPANY-US201007001813

PATIENT
  Sex: Female

DRUGS (4)
  1. CYMBALTA [Suspect]
     Active Substance: DULOXETINE HYDROCHLORIDE
     Indication: DEPRESSION
     Dosage: 30 MG, UNK
     Dates: start: 20100608, end: 20100612
  2. CYMBALTA [Suspect]
     Active Substance: DULOXETINE HYDROCHLORIDE
     Dosage: 60 MG, UNK
     Dates: start: 20100613
  3. PROTONIX [Concomitant]
     Active Substance: PANTOPRAZOLE SODIUM
  4. ZOLOFT [Concomitant]
     Active Substance: SERTRALINE HYDROCHLORIDE

REACTIONS (11)
  - Increased appetite [Unknown]
  - Flatulence [Unknown]
  - Agitation [Unknown]
  - Restlessness [Unknown]
  - Fibromyalgia [Unknown]
  - Mood swings [Unknown]
  - Drug effect incomplete [Unknown]
  - Palpitations [Unknown]
  - Weight increased [Unknown]
  - Psychomotor hyperactivity [Unknown]
  - Hyperhidrosis [Unknown]
